FAERS Safety Report 7682919-1 (Version None)
Quarter: 2011Q3

REPORT INFORMATION
  Report Type: 
  Country: None (occurrence: None)
  Receive Date: 20110815
  Receipt Date: 20110805
  Transmission Date: 20111222
  Serious: Yes (Other)
  Sender: FDA-Public Use
  Company Number: US-JNJFOC-20110803704

PATIENT
  Age: 75 Year
  Sex: Male

DRUGS (2)
  1. ZYTIGA [Suspect]
     Indication: PROSTATE CANCER METASTATIC
     Route: 048
     Dates: start: 20110705
  2. ZYTIGA [Suspect]
     Indication: METASTASES TO BONE
     Route: 048
     Dates: start: 20110705

REACTIONS (1)
  - BLOOD ALKALINE PHOSPHATASE INCREASED [None]
